FAERS Safety Report 8960561 (Version 1)
Quarter: 2012Q4

REPORT INFORMATION
  Report Type: Spontaneous
  Country: US (occurrence: None)
  Receive Date: 20121203
  Receipt Date: 20121203
  Transmission Date: 20130627
  Serious: Yes (Hospitalization)
  Sender: FDA-Public Use
  Company Number: 2012SUN00286

PATIENT
  Age: 45 Year
  Sex: Female

DRUGS (3)
  1. GEMCITABINE [Suspect]
     Indication: CHOLANGIOCARCINOMA NON-RESECTABLE
     Route: 042
  2. OXALIPLATIN [Suspect]
     Indication: CHOLANGIOCARCINOMA NON-RESECTABLE
     Route: 042
  3. BEVACIZUMAB [Suspect]
     Indication: CHOLANGIOCARCINOMA NON-RESECTABLE
     Route: 042

REACTIONS (7)
  - Posterior reversible encephalopathy syndrome [None]
  - Hypertension [None]
  - Unresponsive to stimuli [None]
  - Grand mal convulsion [None]
  - Sinus tachycardia [None]
  - Blood pressure increased [None]
  - Proteinuria [None]
